FAERS Safety Report 18596894 (Version 1)
Quarter: 2020Q4

REPORT INFORMATION
  Report Type: Report from Study
  Country: US (occurrence: US)
  Receive Date: 20201209
  Receipt Date: 20201209
  Transmission Date: 20210114
  Serious: Yes (Hospitalization, Other)
  Sender: FDA-Public Use
  Company Number: US-MYLANLABS-2020M1100027

PATIENT
  Sex: Female

DRUGS (2)
  1. CLOZAPINE. [Suspect]
     Active Substance: CLOZAPINE
     Dosage: UNK, PRN
  2. CLOZAPINE. [Suspect]
     Active Substance: CLOZAPINE
     Indication: PRODUCT USED FOR UNKNOWN INDICATION
     Dosage: UNK

REACTIONS (17)
  - Hospitalisation [Unknown]
  - Feeling drunk [Unknown]
  - Torticollis [Unknown]
  - Abdominal pain upper [Unknown]
  - Eye contusion [Unknown]
  - Overdose [Unknown]
  - Aspiration [Unknown]
  - Constipation [Unknown]
  - Headache [Unknown]
  - Loss of consciousness [Unknown]
  - Memory impairment [Unknown]
  - Hallucination [Unknown]
  - Haemorrhage [Unknown]
  - Pruritus [Unknown]
  - Hypotension [Unknown]
  - Near death experience [Unknown]
  - Seizure like phenomena [Unknown]
